FAERS Safety Report 21829017 (Version 1)
Quarter: 2023Q1

REPORT INFORMATION
  Report Type: Report from Study
  Country: US (occurrence: US)
  Receive Date: 20230106
  Receipt Date: 20230106
  Transmission Date: 20230417
  Serious: Yes (Hospitalization)
  Sender: FDA-Public Use
  Company Number: US-ABBVIE-4259666

PATIENT
  Sex: Female

DRUGS (1)
  1. HUMIRA [Suspect]
     Active Substance: ADALIMUMAB
     Indication: Hidradenitis
     Route: 058
     Dates: start: 20220608

REACTIONS (4)
  - Seizure [Recovering/Resolving]
  - Feeling abnormal [Recovering/Resolving]
  - Memory impairment [Unknown]
  - Drug hypersensitivity [Unknown]
